FAERS Safety Report 13017377 (Version 1)
Quarter: 2016Q4

REPORT INFORMATION
  Report Type: Spontaneous
  Country: US (occurrence: US)
  Receive Date: 20161210
  Receipt Date: 20161210
  Transmission Date: 20170207
  Serious: Yes (Hospitalization)
  Sender: FDA-Public Use
  Company Number: None

PATIENT
  Age: 27 Year
  Sex: Female
  Weight: 58.95 kg

DRUGS (8)
  1. VITAMIN B12 [Concomitant]
     Active Substance: CYANOCOBALAMIN
  2. FISH OIL [Concomitant]
     Active Substance: FISH OIL
  3. VITAMIN K [Concomitant]
     Active Substance: PHYTONADIONE
  4. VISTARIL [Concomitant]
     Active Substance: HYDROXYZINE PAMOATE
  5. LAMICTAL [Suspect]
     Active Substance: LAMOTRIGINE
     Indication: BIPOLAR DISORDER
     Dosage: ?          QUANTITY:270 TABLET(S);?
     Route: 048
  6. NAPROXEN SODIUM. [Concomitant]
     Active Substance: NAPROXEN SODIUM
  7. VITAMIN C [Concomitant]
     Active Substance: ASCORBIC ACID
  8. MAGNESIUM AND CALCIUM WITH VITAMIN D [Concomitant]

REACTIONS (10)
  - Cardiac arrest [None]
  - Paraesthesia [None]
  - Nausea [None]
  - Poor quality sleep [None]
  - Feeling abnormal [None]
  - Seizure [None]
  - Apnoea [None]
  - Loss of consciousness [None]
  - Vomiting [None]
  - Memory impairment [None]

NARRATIVE: CASE EVENT DATE: 20161119
